FAERS Safety Report 10142564 (Version 5)
Quarter: 2014Q2

REPORT INFORMATION
  Report Type: Spontaneous
  Country: MA (occurrence: MA)
  Receive Date: 20140430
  Receipt Date: 20140627
  Transmission Date: 20141212
  Serious: Yes (Death, Hospitalization)
  Sender: FDA-Public Use
  Company Number: MA-JNJFOC-20140416051

PATIENT
  Age: 64 Year
  Sex: Male

DRUGS (4)
  1. ZYTIGA [Suspect]
     Indication: PROSTATE CANCER METASTATIC
     Dosage: 250MG 4 TABLET PER DAY
     Route: 048
     Dates: start: 20130906, end: 20140420
  2. PREDNISONE [Suspect]
     Indication: PROSTATE CANCER
     Route: 065
  3. SOLUPRED [Concomitant]
     Route: 048
     Dates: start: 20130926, end: 20140428
  4. ZOLADEX [Concomitant]
     Route: 065

REACTIONS (1)
  - Interstitial lung disease [Fatal]
